FAERS Safety Report 5022728-5 (Version None)
Quarter: 2006Q2

REPORT INFORMATION
  Report Type: 
  Country: None (occurrence: None)
  Receive Date: 20060609
  Receipt Date: 20060424
  Transmission Date: 20061013
  Serious: Yes (Life-Threatening, Hospitalization)
  Sender: FDA-Public Use
  Company Number: PHBS2006JP06073

PATIENT
  Age: 47 Year
  Sex: Female

DRUGS (2)
  1. DIOVAN [Suspect]
     Indication: HYPERTENSION
     Dosage: 80 MG/DAY
     Route: 048
     Dates: start: 20060404, end: 20060421
  2. OLMETEC [Suspect]
     Indication: HYPERTENSION
     Dosage: 20 MG/DAY
     Route: 048
     Dates: start: 20060404, end: 20060421

REACTIONS (9)
  - BLOOD BILIRUBIN INCREASED [None]
  - COOMBS DIRECT TEST POSITIVE [None]
  - EATING DISORDER [None]
  - ELECTROCARDIOGRAM ST SEGMENT DEPRESSION [None]
  - HAEMOGLOBIN DECREASED [None]
  - HAEMOLYTIC ANAEMIA [None]
  - NAUSEA [None]
  - PALPITATIONS [None]
  - SYSTEMIC LUPUS ERYTHEMATOSUS [None]
